FAERS Safety Report 8368579-5 (Version None)
Quarter: 2012Q2

REPORT INFORMATION
  Report Type: 
  Country: None (occurrence: None)
  Receive Date: 20120518
  Receipt Date: 20120514
  Transmission Date: 20120825
  Serious: No
  Sender: FDA-Public Use
  Company Number: US-BIOGENIDEC-2011BI046448

PATIENT
  Age: 30 Year
  Sex: Female

DRUGS (4)
  1. TYLENOL (CAPLET) [Concomitant]
     Indication: PREMEDICATION
  2. TYSABRI [Suspect]
     Indication: MULTIPLE SCLEROSIS
     Route: 042
     Dates: start: 20111202
  3. AVONEX [Concomitant]
     Dates: start: 20050101, end: 20110101
  4. CLARITIN [Concomitant]
     Indication: PREMEDICATION

REACTIONS (6)
  - FLUSHING [None]
  - DYSARTHRIA [None]
  - BLOOD PRESSURE INCREASED [None]
  - HEADACHE [None]
  - NERVOUSNESS [None]
  - FATIGUE [None]
